FAERS Safety Report 16280279 (Version 1)
Quarter: 2019Q2

REPORT INFORMATION
  Report Type: Spontaneous
  Country: CA (occurrence: CA)
  Receive Date: 20190507
  Receipt Date: 20190507
  Transmission Date: 20190711
  Serious: Yes (Hospitalization)
  Sender: FDA-Public Use
  Company Number: CA-GLAXOSMITHKLINE-CA2019GSK074253

PATIENT
  Age: 58 Year
  Sex: Female

DRUGS (6)
  1. ENTOCORT EC [Suspect]
     Active Substance: BUDESONIDE
     Indication: PRODUCT USED FOR UNKNOWN INDICATION
     Dosage: 6.0 MG, UNK, 1 EVERY 1 DAY(S)
  2. METHOTREXATE. [Suspect]
     Active Substance: METHOTREXATE
     Indication: PRODUCT USED FOR UNKNOWN INDICATION
     Dosage: 25.0 MG, UNK, 1 EVERY 1 WEEK(S)
  3. INCRUSE ELLIPTA [Suspect]
     Active Substance: UMECLIDINIUM BROMIDE
     Indication: PRODUCTIVE COUGH
     Dosage: 62.5 UG, QD, 1 EVERY 1 DAY(S)
     Route: 055
  4. MINT DULOXETINE [Concomitant]
     Indication: DEPRESSION
     Dosage: 120.0 MG, UNK, 1 EVERY 1 DAY (S)
  5. MINT DULOXETINE [Concomitant]
     Indication: ANXIETY
  6. LEVOLEUCOVORIN CALCIUM. [Suspect]
     Active Substance: LEVOLEUCOVORIN CALCIUM
     Indication: PRODUCT USED FOR UNKNOWN INDICATION
     Dosage: 30.0 MG, UNK, 1 EVERY 1 WEEK(S)

REACTIONS (2)
  - Condition aggravated [Unknown]
  - Drug ineffective [Unknown]
